FAERS Safety Report 10069274 (Version 1)
Quarter: 2014Q2

REPORT INFORMATION
  Report Type: Spontaneous
  Country: US (occurrence: US)
  Receive Date: 20140409
  Receipt Date: 20140409
  Transmission Date: 20141212
  Serious: No
  Sender: FDA-Public Use
  Company Number: US-ASTELLAS-2014US001185

PATIENT
  Sex: Female

DRUGS (2)
  1. PROTOPIC [Suspect]
     Indication: EYELID IRRITATION
     Dosage: UNK
     Route: 061
  2. PROTOPIC [Suspect]
     Indication: ERYTHEMA OF EYELID

REACTIONS (3)
  - Off label use [Unknown]
  - Eyelid oedema [Unknown]
  - Eye irritation [Unknown]
